FAERS Safety Report 4423141-1 (Version None)
Quarter: 2004Q3

REPORT INFORMATION
  Report Type: 
  Country: None (occurrence: None)
  Receive Date: 20040811
  Receipt Date: 19991117
  Transmission Date: 20050211
  Serious: Yes (Other)
  Sender: FDA-Public Use
  Company Number: US-ROCHE-221017

PATIENT
  Age: 43 Year
  Sex: Female
  Weight: 49 kg

DRUGS (21)
  1. VERSED [Suspect]
     Indication: SEDATION
     Dosage: 8 MG WAS DIVIDED INTO 4 DOSES: 3, 2, 2 AND 1 MG.
     Route: 042
     Dates: start: 19981110, end: 19981110
  2. VERSED [Suspect]
     Dosage: 3MG AND 2 MG
     Route: 042
     Dates: start: 19981115, end: 19981115
  3. VERSED [Suspect]
     Route: 042
     Dates: start: 20000313, end: 20000313
  4. STEROID INJECTABLE [Suspect]
     Indication: PAIN
     Route: 008
     Dates: start: 19981115, end: 19981115
  5. VERAPAMIL [Concomitant]
     Route: 048
     Dates: end: 19990915
  6. AMITRIPTYLINE HCL [Concomitant]
     Indication: MIGRAINE
     Dosage: AT BEDTIME
     Route: 048
     Dates: end: 19990915
  7. PAPAVERINE [Concomitant]
     Indication: MIGRAINE
     Route: 048
     Dates: end: 19990915
  8. PINDOLOL [Concomitant]
     Indication: MIGRAINE
     Route: 048
     Dates: start: 19990915
  9. CHRONULAC [Concomitant]
     Indication: CONSTIPATION
     Route: 048
  10. PROVERA [Concomitant]
     Route: 048
  11. FLONASE [Concomitant]
     Route: 048
  12. ESTRACE [Concomitant]
  13. ESTRATEST [Concomitant]
  14. ZANTAC [Concomitant]
  15. REGLAN [Concomitant]
  16. NEURONTIN [Concomitant]
  17. CELEXA [Concomitant]
  18. XYLOCAINE [Concomitant]
     Dates: start: 19981110, end: 19981110
  19. CELESTONE [Concomitant]
     Dates: start: 19981110, end: 19981110
  20. .9% NORMAL SALINE [Concomitant]
     Dates: start: 19981110, end: 19981110
  21. OMNIPAQUE 240 [Concomitant]
     Dates: start: 19981110, end: 19981110

REACTIONS (15)
  - AGGRESSION [None]
  - AMNESIA [None]
  - BIPOLAR DISORDER [None]
  - BLOOD PRESSURE DECREASED [None]
  - CONDITION AGGRAVATED [None]
  - COUGH [None]
  - FIBROMYALGIA [None]
  - HEART RATE DECREASED [None]
  - HYPOAESTHESIA [None]
  - LETHARGY [None]
  - MEDICATION ERROR [None]
  - MIGRAINE [None]
  - NECK PAIN [None]
  - OVERDOSE [None]
  - SEDATION [None]
